FAERS Safety Report 13013066 (Version 1)
Quarter: 2016Q4

REPORT INFORMATION
  Report Type: Spontaneous
  Country: PE (occurrence: PE)
  Receive Date: 20161209
  Receipt Date: 20161209
  Transmission Date: 20170207
  Serious: Yes (Other)
  Sender: FDA-Public Use
  Company Number: PE-PFIZER INC-2016565671

PATIENT
  Age: 77 Year
  Sex: Female

DRUGS (1)
  1. XALATAN [Suspect]
     Active Substance: LATANOPROST
     Indication: RETINAL INFARCTION
     Dosage: UNK

REACTIONS (3)
  - Pulmonary fibrosis [Unknown]
  - Hypertension [Unknown]
  - Diabetes mellitus [Unknown]
